FAERS Safety Report 23394815 (Version 1)
Quarter: 2024Q1

REPORT INFORMATION
  Report Type: Spontaneous
  Country: US (occurrence: US)
  Receive Date: 20240112
  Receipt Date: 20240112
  Transmission Date: 20240410
  Serious: Yes (Other)
  Sender: FDA-Public Use
  Company Number: US-SA-SAC20240111000404

PATIENT
  Sex: Female

DRUGS (2)
  1. LANTUS SOLOSTAR [Suspect]
     Active Substance: INSULIN GLARGINE
     Dosage: UNK
  2. RYBELSUS [Concomitant]
     Active Substance: SEMAGLUTIDE
     Dosage: UNK

REACTIONS (1)
  - Cerebrovascular accident [Unknown]
